FAERS Safety Report 7521747-4 (Version None)
Quarter: 2011Q2

REPORT INFORMATION
  Report Type: 
  Country: None (occurrence: None)
  Receive Date: 20110603
  Receipt Date: 20110531
  Transmission Date: 20111010
  Serious: Yes (Hospitalization)
  Sender: FDA-Public Use
  Company Number: US-PFIZER INC-2011118138

PATIENT
  Sex: Male

DRUGS (15)
  1. SIMVASTATIN [Concomitant]
     Dosage: UNK
  2. HUMALOG [Concomitant]
     Dosage: UNK
  3. GABAPENTIN [Concomitant]
     Dosage: UNK
  4. NITROSTAT [Suspect]
     Indication: BLOOD PRESSURE
  5. COUMADIN [Concomitant]
     Dosage: UNK
  6. NITROSTAT [Suspect]
     Indication: CARDIAC DISORDER
  7. PLAVIX [Concomitant]
     Dosage: UNK
  8. SPIRONOLACTONE [Concomitant]
     Dosage: UNK
  9. LANTUS [Concomitant]
     Dosage: UNK
  10. OMEPRAZOLE [Concomitant]
     Dosage: UNK
  11. DILTIAZEM [Concomitant]
     Dosage: UNK
  12. NITROSTAT [Suspect]
     Indication: ANGINA PECTORIS
     Dosage: 1.2 MG, AS NEEDED
     Route: 060
  13. CARVEDILOL [Concomitant]
     Dosage: UNK
  14. FUROSEMIDE [Concomitant]
     Dosage: UNK
  15. ISOSORBIDE [Concomitant]
     Indication: BLOOD PRESSURE ABNORMAL
     Dosage: UNK

REACTIONS (3)
  - CHEST PAIN [None]
  - INCORRECT DOSE ADMINISTERED [None]
  - DRUG INEFFECTIVE [None]
